FAERS Safety Report 19714352 (Version 1)
Quarter: 2021Q3

REPORT INFORMATION
  Report Type: Spontaneous
  Country: NL (occurrence: NL)
  Receive Date: 20210818
  Receipt Date: 20210818
  Transmission Date: 20211014
  Serious: Yes (Hospitalization, Other)
  Sender: FDA-Public Use
  Company Number: NL-ABBVIE-21K-114-4043718-00

PATIENT
  Sex: Male

DRUGS (1)
  1. IMBRUVICA [Suspect]
     Active Substance: IBRUTINIB
     Indication: LYMPHOCYTIC LYMPHOMA
     Route: 048
     Dates: end: 201910

REACTIONS (6)
  - Blood product transfusion dependent [Unknown]
  - Meningitis [Unknown]
  - Varicella zoster virus infection [Unknown]
  - Lymphadenopathy [Unknown]
  - Lung neoplasm malignant [Unknown]
  - Fungal infection [Unknown]
